FAERS Safety Report 17067565 (Version 1)
Quarter: 2019Q4

REPORT INFORMATION
  Report Type: Spontaneous
  Country: US (occurrence: US)
  Receive Date: 20191122
  Receipt Date: 20191122
  Transmission Date: 20200122
  Serious: No
  Sender: FDA-Public Use
  Company Number: US-BIODELIVERY SCIENCES INTERNATIONAL-2019BDSI0665

PATIENT
  Age: 72 Year
  Sex: Female
  Weight: 55.39 kg

DRUGS (3)
  1. BUPRENORPHINE. [Suspect]
     Active Substance: BUPRENORPHINE
     Indication: PAIN
     Dosage: UNKNOWN
     Route: 002
     Dates: start: 2018, end: 201907
  2. BUPRENORPHINE. [Suspect]
     Active Substance: BUPRENORPHINE
     Route: 002
     Dates: start: 201907
  3. HYDROCODONE [Concomitant]
     Active Substance: HYDROCODONE
     Indication: PAIN
     Dosage: 7.5MG/325MG, UNKNOWN
     Route: 048

REACTIONS (2)
  - Gingival pain [Not Recovered/Not Resolved]
  - Noninfective gingivitis [Not Recovered/Not Resolved]

NARRATIVE: CASE EVENT DATE: 201907
